FAERS Safety Report 26156891 (Version 1)
Quarter: 2025Q4

REPORT INFORMATION
  Report Type: Spontaneous
  Country: US (occurrence: US)
  Receive Date: 20251215
  Receipt Date: 20251215
  Transmission Date: 20260118
  Serious: Yes (Hospitalization, Other)
  Sender: LUPIN
  Company Number: US-LUPIN PHARMACEUTICALS INC.-2025-11209

PATIENT
  Age: 51 Year
  Sex: Male

DRUGS (5)
  1. TESTOSTERONE [Suspect]
     Active Substance: TESTOSTERONE
     Indication: Hypogonadism
     Dosage: RECEIVING FOR ABOUT 2 YEARS BEFORE CURRENT PRESENTATION)
     Route: 065
  2. PRASTERONE [Suspect]
     Active Substance: PRASTERONE
     Indication: Hypogonadism
     Dosage: RECEIVING FOR ABOUT 2 YEARS BEFORE CURRENT PRESENTATION)
     Route: 065
  3. PREGNENOLONE [Suspect]
     Active Substance: PREGNENOLONE
     Indication: Hypogonadism
     Dosage: RECEIVING FOR ABOUT 2 YEARS BEFORE CURRENT PRESENTATION)
     Route: 065
  4. CEFTRIAXONE [Concomitant]
     Active Substance: CEFTRIAXONE
     Indication: Influenza like illness
     Dosage: UNK
  5. BENADRYL [Concomitant]
     Active Substance: DIPHENHYDRAMINE HYDROCHLORIDE
     Indication: Hypersensitivity
     Dosage: 50 MILLIGRAM

REACTIONS (2)
  - Embolism arterial [Recovered/Resolved]
  - Thrombosis [Recovered/Resolved]
